FAERS Safety Report 5958367-9 (Version None)
Quarter: 2008Q4

REPORT INFORMATION
  Report Type: 
  Country: None (occurrence: None)
  Receive Date: 20081119
  Receipt Date: 20081113
  Transmission Date: 20090506
  Serious: Yes (Hospitalization)
  Sender: FDA-Public Use
  Company Number: US-ASTRAZENECA-2008UW12257

PATIENT
  Age: 34 Year
  Sex: Female
  Weight: 146.1 kg

DRUGS (6)
  1. SEROQUEL [Suspect]
     Indication: BIPOLAR DISORDER
     Dosage: 25MG, 30MG
     Route: 048
     Dates: start: 20040703, end: 20051101
  2. SEROQUEL [Suspect]
     Indication: SCHIZOPHRENIA
     Dosage: 25MG, 30MG
     Route: 048
     Dates: start: 20040703, end: 20051101
  3. SEROQUEL [Suspect]
     Indication: DEPRESSION
     Dosage: 25MG, 30MG
     Route: 048
     Dates: start: 20040703, end: 20051101
  4. ABILIFY [Concomitant]
     Dates: start: 20060101
  5. RISPERDAL [Concomitant]
     Dates: start: 20060101
  6. EFFEXOR [Concomitant]
     Dates: start: 20041001, end: 20050201

REACTIONS (5)
  - BLOOD CHOLESTEROL INCREASED [None]
  - BLOOD TRIGLYCERIDES INCREASED [None]
  - BREAST ABSCESS [None]
  - DIABETES MELLITUS [None]
  - OBESITY [None]
